FAERS Safety Report 23616623 (Version 1)
Quarter: 2024Q1

REPORT INFORMATION
  Report Type: Spontaneous
  Country: US (occurrence: US)
  Receive Date: 20240311
  Receipt Date: 20240311
  Transmission Date: 20240410
  Serious: Yes (Other)
  Sender: FDA-Public Use
  Company Number: US-REGENERON PHARMACEUTICALS, INC.-2024-041386

PATIENT
  Sex: Male

DRUGS (1)
  1. EYLEA [Suspect]
     Active Substance: AFLIBERCEPT
     Indication: Retinal disorder
     Dosage: UNK, ONCE A MONTH, FORMULATION: UNKNOWN

REACTIONS (5)
  - Eye haemorrhage [Unknown]
  - Eye oedema [Unknown]
  - Visual impairment [Unknown]
  - Unevaluable event [Unknown]
  - Eye pain [Unknown]
